FAERS Safety Report 11178884 (Version 1)
Quarter: 2015Q2

REPORT INFORMATION
  Report Type: Spontaneous
  Country: CA (occurrence: None)
  Receive Date: 20150601
  Receipt Date: 20150601
  Transmission Date: 20150821
  Serious: Yes (Death, Hospitalization)
  Sender: FDA-Public Use
  Company Number: GTI003230

PATIENT
  Age: 55 Year
  Sex: Male

DRUGS (17)
  1. ZOFRAN [Concomitant]
     Active Substance: ONDANSETRON HYDROCHLORIDE
  2. SIROLIMUS. [Concomitant]
     Active Substance: SIROLIMUS
  3. POSACONAZOLE [Concomitant]
     Active Substance: POSACONAZOLE
  4. GAMUNEX [Suspect]
     Active Substance: HUMAN IMMUNOGLOBULIN G
     Indication: STEM CELL TRANSPLANT
     Route: 042
     Dates: start: 20121205
  5. FRAGMIN [Concomitant]
     Active Substance: DALTEPARIN SODIUM
  6. HALDOL [Concomitant]
     Active Substance: HALOPERIDOL
  7. LASIX [Concomitant]
     Active Substance: FUROSEMIDE
  8. IGIV (MANUFACTURER UNKNOWN) [Concomitant]
  9. VITAMIN D [Concomitant]
     Active Substance: CHOLECALCIFEROL
  10. IMOVANE [Concomitant]
     Active Substance: ZOPICLONE
  11. ALENDRONATE [Concomitant]
     Active Substance: ALENDRONATE SODIUM
  12. CYCLOSPORINE. [Concomitant]
     Active Substance: CYCLOSPORINE
  13. VENTOLIN [Concomitant]
     Active Substance: ALBUTEROL SULFATE
  14. PREDNISONE. [Concomitant]
     Active Substance: PREDNISONE
  15. GAMUNEX [Suspect]
     Active Substance: HUMAN IMMUNOGLOBULIN G
     Indication: IMMUNODEFICIENCY
     Route: 042
     Dates: start: 20121205
  16. TYLENOL [Concomitant]
     Active Substance: ACETAMINOPHEN
  17. BISACODYL. [Concomitant]
     Active Substance: BISACODYL

REACTIONS (1)
  - Haemolysis [None]

NARRATIVE: CASE EVENT DATE: 20150406
